FAERS Safety Report 9818903 (Version 3)
Quarter: 2014Q1

REPORT INFORMATION
  Report Type: Spontaneous
  Country: US (occurrence: US)
  Receive Date: 20140115
  Receipt Date: 20140127
  Transmission Date: 20141002
  Serious: Yes (Hospitalization, Other)
  Sender: FDA-Public Use
  Company Number: US-PFIZER INC-2014008598

PATIENT
  Age: 50 Year
  Sex: Male
  Weight: 146.96 kg

DRUGS (4)
  1. DILANTIN [Suspect]
     Dosage: 490 MG (TWO CAPSULES OF 100MG IN THE MORNING AND TWO CAPSULES OF 100 MG AT NIGHT)
     Route: 048
  2. DILANTIN [Suspect]
     Dosage: 125 MG, UNK
     Dates: start: 201401
  3. CHANTIX [Suspect]
     Dosage: UNK
  4. METFORMIN HYDROCHLORIDE [Concomitant]
     Indication: DIABETES MELLITUS
     Dosage: 500 MG, DAILY

REACTIONS (3)
  - Gastric polyps [Unknown]
  - Volvulus [Unknown]
  - Large intestine polyp [Unknown]
